FAERS Safety Report 22017063 (Version 1)
Quarter: 2023Q1

REPORT INFORMATION
  Report Type: Spontaneous
  Country: US (occurrence: US)
  Receive Date: 20230221
  Receipt Date: 20230221
  Transmission Date: 20230417
  Serious: Yes (Death, Life-Threatening, Hospitalization)
  Sender: FDA-Public Use
  Company Number: US-MYLANLABS-2023M1018308

PATIENT
  Sex: Female

DRUGS (26)
  1. EPINEPHRINE [Suspect]
     Active Substance: EPINEPHRINE
     Indication: Hypotension
     Dosage: UNK (INFUSION)
     Route: 042
  2. NOREPINEPHRINE [Suspect]
     Active Substance: NOREPINEPHRINE
     Indication: Hypotension
     Dosage: UNK
     Route: 065
  3. TRANEXAMIC ACID [Suspect]
     Active Substance: TRANEXAMIC ACID
     Indication: Drug therapy
     Dosage: 1 GRAM
     Route: 065
  4. TRANEXAMIC ACID [Suspect]
     Active Substance: TRANEXAMIC ACID
     Indication: Postpartum haemorrhage
  5. VASOPRESSIN [Suspect]
     Active Substance: VASOPRESSIN
     Indication: Hypotension
     Dosage: UNK
     Route: 042
  6. EPOPROSTENOL [Suspect]
     Active Substance: EPOPROSTENOL
     Indication: Right ventricular failure
     Dosage: UNK
     Route: 065
  7. MISOPROSTOL [Suspect]
     Active Substance: MISOPROSTOL
     Indication: Labour augmentation
     Dosage: UNK
     Route: 065
  8. MISOPROSTOL [Suspect]
     Active Substance: MISOPROSTOL
     Indication: Postpartum haemorrhage
  9. SODIUM BICARBONATE [Suspect]
     Active Substance: SODIUM BICARBONATE
     Indication: Metabolic acidosis
     Dosage: UNK
     Route: 042
  10. OXYTOCIN [Suspect]
     Active Substance: OXYTOCIN
     Indication: Labour augmentation
     Dosage: UNK
     Route: 065
  11. OXYTOCIN [Suspect]
     Active Substance: OXYTOCIN
     Indication: Postpartum haemorrhage
  12. METHERGINE [Suspect]
     Active Substance: METHYLERGONOVINE MALEATE
     Indication: Postpartum haemorrhage
     Dosage: UNK
     Route: 065
  13. CARBOPROST [Suspect]
     Active Substance: CARBOPROST
     Indication: Postpartum haemorrhage
     Dosage: UNK
     Route: 065
  14. FRESH FROZEN PLASMA [Concomitant]
     Active Substance: HUMAN PLASMA
     Indication: Postpartum haemorrhage
     Dosage: UNK
     Route: 065
  15. PROTHROMBIN [Concomitant]
     Active Substance: PROTHROMBIN
     Indication: Postpartum haemorrhage
     Dosage: 50 INTERNATIONAL UNIT/KILOGRAM
     Route: 065
  16. ERYTHROPOIETIN [Concomitant]
     Active Substance: ERYTHROPOIETIN
     Indication: Drug therapy
     Dosage: UNK, DOSE: 36000 UNITS
     Route: 065
  17. HEMOGLOBIN GLUTAMER (BOVINE) [Concomitant]
     Indication: Shock haemorrhagic
     Dosage: UNK, ADMINISTERED TOTAL OF 14 UNITS
     Route: 042
  18. IRON DEXTRAN [Concomitant]
     Active Substance: IRON DEXTRAN
     Indication: Drug therapy
     Dosage: 500 MILLIGRAM
     Route: 042
  19. VITAMIN B12 [Concomitant]
     Active Substance: CYANOCOBALAMIN
     Indication: Supplementation therapy
     Dosage: UNK
     Route: 065
  20. FOLATE SODIUM [Concomitant]
     Active Substance: FOLATE SODIUM
     Indication: Drug therapy
     Dosage: UNK
     Route: 065
  21. ASCORBIC ACID [Concomitant]
     Active Substance: ASCORBIC ACID
     Indication: Drug therapy
     Dosage: UNK
     Route: 065
  22. DEXTROSE [Concomitant]
     Active Substance: DEXTROSE
     Indication: Metabolic acidosis
     Dosage: UNK
     Route: 042
  23. METHYLENE BLUE [Concomitant]
     Active Substance: METHYLENE BLUE
     Indication: Evidence based treatment
     Dosage: 50 MILLIGRAM
     Route: 042
  24. FUROSEMIDE [Concomitant]
     Active Substance: FUROSEMIDE
     Indication: Metabolic acidosis
     Dosage: UNK
     Route: 042
  25. FUROSEMIDE [Concomitant]
     Active Substance: FUROSEMIDE
     Indication: Hypervolaemia
  26. PHENYLEPHRINE [Concomitant]
     Active Substance: PHENYLEPHRINE HYDROCHLORIDE
     Indication: Hypotension
     Dosage: UNK
     Route: 065

REACTIONS (9)
  - Drug ineffective [Fatal]
  - Pleural effusion [Unknown]
  - Ascites [Unknown]
  - Ejection fraction decreased [Unknown]
  - Ventricular hypokinesia [Unknown]
  - Right atrial enlargement [Unknown]
  - Right ventricular dilatation [Unknown]
  - Systolic dysfunction [Unknown]
  - Ventricular septal defect [Unknown]
